FAERS Safety Report 6191286-4 (Version None)
Quarter: 2009Q2

REPORT INFORMATION
  Report Type: 
  Country: None (occurrence: None)
  Receive Date: 20090513
  Receipt Date: 20090513
  Transmission Date: 20091009
  Serious: No
  Sender: FDA-Public Use
  Company Number: None

PATIENT
  Age: 80 Year
  Sex: Female
  Weight: 68.0396 kg

DRUGS (1)
  1. ACTONEL [Suspect]
     Indication: OSTEOPOROSIS
     Dosage: DAILY ORAL
     Route: 048
     Dates: start: 20070101

REACTIONS (3)
  - COUGH [None]
  - MUSCLE SPASMS [None]
  - OESOPHAGEAL DISORDER [None]
